FAERS Safety Report 11447294 (Version 1)
Quarter: 2015Q3

REPORT INFORMATION
  Report Type: Spontaneous
  Country: US (occurrence: US)
  Receive Date: 20150831
  Receipt Date: 20150831
  Transmission Date: 20151125
  Serious: No
  Sender: FDA-Public Use
  Company Number: US-ELI_LILLY_AND_COMPANY-US200903004273

PATIENT
  Age: 29 Year
  Sex: Female

DRUGS (4)
  1. TRINESSA [Concomitant]
     Active Substance: ETHINYL ESTRADIOL\NORGESTIMATE
  2. BIOTIN [Concomitant]
     Active Substance: BIOTIN
  3. SLOW-FE [Concomitant]
     Indication: IRON DEFICIENCY
     Dosage: UNK, UNK
     Route: 048
     Dates: start: 20090227
  4. CYMBALTA [Suspect]
     Active Substance: DULOXETINE HYDROCHLORIDE
     Indication: DEPRESSION
     Route: 048

REACTIONS (3)
  - Faeces discoloured [Unknown]
  - Pupillary reflex impaired [Unknown]
  - Mydriasis [Unknown]

NARRATIVE: CASE EVENT DATE: 20090202
